FAERS Safety Report 8543718 (Version 2)
Quarter: 2012Q4

REPORT INFORMATION
  Report Type: 
  Country: FR (occurrence: FR)
  Receive Date: 20120503
  Receipt Date: 20121207
  Transmission Date: 20130627
  Serious: Yes (Hospitalization)
  Sender: FDA-Public Use
  Company Number: FR-ACCORD-013337

PATIENT
  Age: 73 Year
  Sex: Male

DRUGS (3)
  1. FLUOROURACIL [Suspect]
     Indication: RECTAL ADENOCARCINOMA
     Dates: start: 20101201
  2. OXALIPLATIN [Suspect]
     Indication: RECTAL ADENOCARCINOMA
     Dates: start: 20101201
  3. FOLINIC ACID [Suspect]
     Indication: RECTAL ADENOCARCINOMA
     Dates: start: 20101201

REACTIONS (2)
  - Pneumatosis intestinalis [Recovering/Resolving]
  - Pneumoperitoneum [Recovering/Resolving]
